FAERS Safety Report 4342284-4 (Version None)
Quarter: 2004Q2

REPORT INFORMATION
  Report Type: 
  Country: None (occurrence: None)
  Receive Date: 20040415
  Receipt Date: 20031201
  Transmission Date: 20050107
  Serious: Yes (Life-Threatening)
  Sender: FDA-Public Use
  Company Number: 805#1#2003-00044

PATIENT
  Age: 79 Year
  Sex: Male

DRUGS (6)
  1. ALPROSTADIL [Suspect]
     Indication: ATHEROSCLEROSIS
     Dosage: 1.80 MCG (40 MCG 2 IN 1 DAY (S)) INTRAVENOUS DRIP
     Route: 041
     Dates: start: 20031031, end: 20031111
  2. ALPROSTADIL [Suspect]
     Indication: ATHEROSCLEROSIS
     Dosage: 15 MCG ORAL
     Route: 048
     Dates: start: 20031031, end: 20031111
  3. LOXOPROFEN SODIUM [Concomitant]
  4. NEUROTROPIN (ORGAN LYSATE, STANDARDIZED) [Concomitant]
  5. ALENDRONATE SODIUM [Concomitant]
  6. REBAMIPIDE [Concomitant]

REACTIONS (8)
  - BLOOD PRESSURE DIASTOLIC DECREASED [None]
  - BLOOD PRESSURE INCREASED [None]
  - COMA [None]
  - INTERSTITIAL LUNG DISEASE [None]
  - PAIN IN EXTREMITY [None]
  - PARAESTHESIA [None]
  - PERIPHERAL COLDNESS [None]
  - PUPILLARY REFLEX IMPAIRED [None]
